FAERS Safety Report 8421028-0 (Version None)
Quarter: 2012Q2

REPORT INFORMATION
  Report Type: 
  Country: None (occurrence: None)
  Receive Date: 20120608
  Receipt Date: 20120528
  Transmission Date: 20120825
  Serious: Yes (Other)
  Sender: FDA-Public Use
  Company Number: CA-JNJFOC-20120520009

PATIENT
  Sex: Female
  Weight: 58.2 kg

DRUGS (6)
  1. REMICADE [Suspect]
     Indication: CROHN'S DISEASE
     Route: 042
     Dates: start: 20100101
  2. EMTEC 30 [Concomitant]
     Route: 065
  3. BUDESONIDE [Concomitant]
     Route: 065
  4. SERTRALINE HYDROCHLORIDE [Concomitant]
     Route: 065
  5. CORTIFOAM [Concomitant]
     Route: 065
  6. DEXILANT [Concomitant]
     Route: 065

REACTIONS (1)
  - ENDOSCOPY [None]
